FAERS Safety Report 9459726 (Version 2)
Quarter: 2013Q3

REPORT INFORMATION
  Report Type: Spontaneous
  Country: CH (occurrence: CH)
  Receive Date: 20130815
  Receipt Date: 20130821
  Transmission Date: 20140515
  Serious: Yes (Death, Other)
  Sender: FDA-Public Use
  Company Number: CH-009507513-1308CHE006017

PATIENT
  Age: 33 Year
  Sex: Female

DRUGS (5)
  1. REMERON SOLTAB [Suspect]
     Indication: DEPRESSION
     Dosage: 15 MG, QD
     Route: 048
     Dates: start: 20121214, end: 20130103
  2. CITALOPRAM ACTAVIS [Suspect]
     Indication: DEPRESSION
     Dosage: 20 MG, QD
     Route: 048
     Dates: start: 20121204, end: 20130102
  3. CITALOPRAM ACTAVIS [Suspect]
     Indication: DEPRESSION
     Dosage: 40 MG, QD
     Route: 048
     Dates: start: 20130103, end: 20130105
  4. VALIUM [Concomitant]
     Dosage: UNK
     Route: 048
     Dates: start: 20121230, end: 20130105
  5. TARDYFERON [Concomitant]
     Indication: IRON DEFICIENCY
     Dosage: 80 MG, QD
     Route: 048
     Dates: start: 20121203, end: 20130103

REACTIONS (1)
  - Completed suicide [Fatal]
